FAERS Safety Report 10231143 (Version 1)
Quarter: 2014Q2

REPORT INFORMATION
  Report Type: Spontaneous
  Country: DE (occurrence: DE)
  Receive Date: 20140611
  Receipt Date: 20140611
  Transmission Date: 20141212
  Serious: Yes (Other)
  Sender: FDA-Public Use
  Company Number: DE-TEVA-486272GER

PATIENT
  Age: 1 Day
  Sex: Male
  Weight: 1.66 kg

DRUGS (6)
  1. DOXORUBICIN [Suspect]
     Route: 064
  2. VINCRISTIN [Suspect]
     Route: 064
  3. RITUXIMAB [Suspect]
     Route: 064
  4. CYCLOPHOSPHAMID [Suspect]
     Route: 064
  5. PREDNISOLON [Concomitant]
     Route: 064
  6. NEULASTA [Concomitant]
     Route: 064

REACTIONS (4)
  - Anaemia [Unknown]
  - Granulocytopenia neonatal [Unknown]
  - Inguinal hernia [Recovered/Resolved with Sequelae]
  - Premature baby [Recovered/Resolved]
